FAERS Safety Report 9125572 (Version 2)
Quarter: 2013Q3

REPORT INFORMATION
  Report Type: Spontaneous
  Country: US (occurrence: US)
  Receive Date: 20130121
  Receipt Date: 20130722
  Transmission Date: 20140515
  Serious: Yes (Other)
  Sender: FDA-Public Use
  Company Number: US-GLAXOSMITHKLINE-A1008874A

PATIENT
  Sex: Male
  Weight: 145 kg

DRUGS (7)
  1. VOTRIENT [Suspect]
     Indication: RENAL CANCER
     Dosage: 200MG SEE DOSAGE TEXT
     Route: 048
  2. AMLODIPINE [Concomitant]
  3. CARVEDILOL [Concomitant]
  4. LOSARTAN WITH HYDROCHLOROTHIAZIDE [Concomitant]
  5. FENOFIBRATE [Concomitant]
  6. ALLOPURINOL [Concomitant]
  7. ASPIRIN [Concomitant]

REACTIONS (6)
  - Wound haemorrhage [Unknown]
  - Alopecia [Unknown]
  - Fatigue [Unknown]
  - Diarrhoea [Unknown]
  - Constipation [Unknown]
  - Muscle spasms [Unknown]
